FAERS Safety Report 7788567-7 (Version None)
Quarter: 2011Q3

REPORT INFORMATION
  Report Type: 
  Country: None (occurrence: None)
  Receive Date: 20110930
  Receipt Date: 20110921
  Transmission Date: 20111222
  Serious: Yes (Hospitalization)
  Sender: FDA-Public Use
  Company Number: DE-B.I. PHARMACEUTICALS,INC./RIDGEFIELD-2011-DE-05020DE

PATIENT
  Sex: Female
  Weight: 58 kg

DRUGS (13)
  1. SPIROLANACTON [Concomitant]
     Dosage: 0.5 ANZ
  2. ATACAND [Concomitant]
     Dosage: 1 ANZ
  3. TORSEMIDE [Concomitant]
     Dosage: 0.5 ANZ
  4. VERTIGOHEEL [Concomitant]
     Dosage: 6 ANZ
  5. PREDNISOLONE [Concomitant]
     Dosage: 30 MG
  6. PROMETHAZINE HCL [Concomitant]
  7. TEBONIN INTENS [Concomitant]
     Dosage: 2 ANZ
  8. SPIRIVA [Suspect]
     Indication: CHRONIC OBSTRUCTIVE PULMONARY DISEASE
     Dosage: 1 ANZ
     Dates: start: 20110301, end: 20110908
  9. MIFLONIDE 200 MIKROGRAMM SPRAY [Concomitant]
     Dosage: 4 ANZ
  10. BERODUAL DA [Concomitant]
  11. ONBREZ [Concomitant]
     Dosage: 1 ANZ
  12. VIANI [Concomitant]
  13. RIOPAN [Concomitant]
     Dosage: IF REQUIRED

REACTIONS (4)
  - DIZZINESS [None]
  - VISION BLURRED [None]
  - OCULAR HYPERAEMIA [None]
  - HOSPITALISATION [None]
